FAERS Safety Report 6225793-2 (Version None)
Quarter: 2009Q2

REPORT INFORMATION
  Report Type: 
  Country: None (occurrence: None)
  Receive Date: 20090612
  Receipt Date: 20090424
  Transmission Date: 20091009
  Serious: No
  Sender: FDA-Public Use
  Company Number: US-ABBOTT-09P-163-0570027-00

PATIENT
  Sex: Female
  Weight: 77.18 kg

DRUGS (3)
  1. HUMIRA [Suspect]
     Indication: PSORIASIS
     Dosage: FIRST DOSE
     Dates: start: 20090301, end: 20090301
  2. HUMIRA [Suspect]
     Dosage: SECOND DOSE
  3. HUMIRA [Suspect]

REACTIONS (1)
  - PSORIASIS [None]
